FAERS Safety Report 7097999-4 (Version None)
Quarter: 2010Q4

REPORT INFORMATION
  Report Type: 
  Country: None (occurrence: None)
  Receive Date: 20101112
  Receipt Date: 20101101
  Transmission Date: 20110411
  Serious: Yes (Other)
  Sender: FDA-Public Use
  Company Number: US-BAYER-201039691NA

PATIENT
  Age: 73 Year
  Sex: Female

DRUGS (8)
  1. BETASERON [Suspect]
     Indication: PRODUCT USED FOR UNKNOWN INDICATION
     Dosage: TOTAL DAILY DOSE: 9.6 MIU
     Route: 058
  2. BACLOFEN [Suspect]
  3. AMPYRA [Suspect]
  4. NIFEDIPINE [Concomitant]
     Indication: PRODUCT USED FOR UNKNOWN INDICATION
     Dosage: TOTAL DAILY DOSE: 30 MG
  5. LORAZEPAM [Concomitant]
     Indication: AGITATION
  6. DAILY VITAMINS [Concomitant]
     Indication: PRODUCT USED FOR UNKNOWN INDICATION
     Dosage: TOTAL DAILY DOSE: 1 DF
  7. FLAXSEED OIL [Concomitant]
     Indication: PRODUCT USED FOR UNKNOWN INDICATION
     Dosage: TOTAL DAILY DOSE: 1 DF
  8. CALCIUM [Concomitant]
     Indication: PRODUCT USED FOR UNKNOWN INDICATION
     Dosage: TOTAL DAILY DOSE: 1 DF

REACTIONS (8)
  - ASTHENIA [None]
  - CYANOPSIA [None]
  - DEPRESSION [None]
  - INSOMNIA [None]
  - PRURITUS GENERALISED [None]
  - RASH [None]
  - SEDATION [None]
  - VISION BLURRED [None]
